FAERS Safety Report 5494710-5 (Version None)
Quarter: 2007Q4

REPORT INFORMATION
  Report Type: 
  Country: None (occurrence: None)
  Receive Date: 20071024
  Receipt Date: 20071019
  Transmission Date: 20080405
  Serious: Yes (Other)
  Sender: FDA-Public Use
  Company Number: US-MERCK-0406USA01321

PATIENT
  Age: 81 Year
  Sex: Female

DRUGS (3)
  1. COSOPT [Suspect]
     Indication: GLAUCOMA
     Route: 047
  2. XALATAN [Concomitant]
     Route: 065
  3. ALPHAGAN [Concomitant]
     Route: 065

REACTIONS (5)
  - BACK PAIN [None]
  - EYE DISCHARGE [None]
  - EYELID MARGIN CRUSTING [None]
  - GLAUCOMA [None]
  - THROMBOSIS [None]
